FAERS Safety Report 12578113 (Version 1)
Quarter: 2016Q3

REPORT INFORMATION
  Report Type: Spontaneous
  Country: US (occurrence: US)
  Receive Date: 20160721
  Receipt Date: 20160721
  Transmission Date: 20161109
  Serious: No
  Sender: FDA-Public Use
  Company Number: US-ASTRAZENECA-2016SE66068

PATIENT
  Age: 840 Month
  Sex: Female

DRUGS (2)
  1. BRILINTA [Suspect]
     Active Substance: TICAGRELOR
     Indication: STENT PLACEMENT
     Route: 048
     Dates: start: 201507
  2. LOSARTAN. [Concomitant]
     Active Substance: LOSARTAN
     Route: 065
     Dates: start: 20160405

REACTIONS (10)
  - Headache [Unknown]
  - Contusion [Unknown]
  - Haemorrhage [Unknown]
  - Malaise [Recovered/Resolved]
  - Dyspnoea [Unknown]
  - Cardiac stress test [Unknown]
  - Eye pain [Unknown]
  - Epistaxis [Unknown]
  - Localised oedema [Unknown]
  - Catheterisation cardiac abnormal [Unknown]

NARRATIVE: CASE EVENT DATE: 201603
